FAERS Safety Report 16311661 (Version 1)
Quarter: 2019Q2

REPORT INFORMATION
  Report Type: Spontaneous
  Country: SA (occurrence: SA)
  Receive Date: 20190514
  Receipt Date: 20190514
  Transmission Date: 20190711
  Serious: Yes (Death, Other)
  Sender: FDA-Public Use
  Company Number: SA-JAZZ-2018-SA-015976

PATIENT
  Age: 4 Month
  Sex: Female

DRUGS (1)
  1. DEFIBROTIDE (NPB) [Suspect]
     Active Substance: DEFIBROTIDE SODIUM
     Indication: DIFFUSE LARGE B-CELL LYMPHOMA
     Dosage: 25 MG/KG, QD
     Route: 042

REACTIONS (1)
  - Pulmonary haemorrhage [Fatal]

NARRATIVE: CASE EVENT DATE: 2018
